FAERS Safety Report 7159772-8 (Version None)
Quarter: 2010Q4

REPORT INFORMATION
  Report Type: 
  Country: None (occurrence: None)
  Receive Date: 20101214
  Receipt Date: 20100930
  Transmission Date: 20110411
  Serious: No
  Sender: FDA-Public Use
  Company Number: US-ASTRAZENECA-2010SE46180

PATIENT
  Age: 68 Year
  Sex: Male
  Weight: 80.3 kg

DRUGS (9)
  1. CRESTOR [Suspect]
     Route: 048
     Dates: start: 20100301
  2. CRESTOR [Suspect]
     Route: 048
  3. METOPROLOL [Concomitant]
  4. ASPIRIN [Concomitant]
  5. SYNTHROID [Concomitant]
  6. AMLODIPINE [Concomitant]
  7. ZETIA [Concomitant]
  8. ASCORBIC ACID [Concomitant]
  9. M.V.I. [Concomitant]

REACTIONS (3)
  - NASOPHARYNGITIS [None]
  - PAIN [None]
  - WRONG TECHNIQUE IN DRUG USAGE PROCESS [None]
